FAERS Safety Report 18247662 (Version 5)
Quarter: 2020Q4

REPORT INFORMATION
  Report Type: Spontaneous
  Country: US (occurrence: US)
  Receive Date: 20200909
  Receipt Date: 20201214
  Transmission Date: 20210113
  Serious: Yes (Other)
  Sender: FDA-Public Use
  Company Number: US-PFIZER INC-2020348668

PATIENT
  Age: 63 Year
  Sex: Female
  Weight: 103.87 kg

DRUGS (1)
  1. IBRANCE [Suspect]
     Active Substance: PALBOCICLIB
     Indication: BREAST CANCER METASTATIC
     Dosage: 125 MG, CYCLIC (125 MG ONCE DAILY BY MOUTH 3 WEEKS ON AND 1 WEEK OFF)
     Route: 048

REACTIONS (4)
  - Thrombosis [Unknown]
  - Alopecia [Not Recovered/Not Resolved]
  - Neoplasm progression [Unknown]
  - Body height decreased [Unknown]
